FAERS Safety Report 9020709 (Version 1)
Quarter: 2013Q1

REPORT INFORMATION
  Report Type: Spontaneous
  Country: US (occurrence: US)
  Receive Date: 20130119
  Receipt Date: 20130119
  Transmission Date: 20140127
  Serious: No
  Sender: FDA-Public Use
  Company Number: US-ALLERGAN-1206260US

PATIENT
  Age: 53 Year
  Sex: Female

DRUGS (1)
  1. BOTOX COSMETIC [Suspect]
     Indication: SKIN WRINKLING
     Dosage: UNK
     Route: 030

REACTIONS (8)
  - Eye swelling [Unknown]
  - Swelling face [Recovering/Resolving]
  - Skin irritation [Recovering/Resolving]
  - Ocular hyperaemia [Unknown]
  - Swelling face [Unknown]
  - Pruritus [Unknown]
  - Drug ineffective [Unknown]
  - Erythema [Unknown]
